FAERS Safety Report 8838116 (Version 1)
Quarter: 2012Q4

REPORT INFORMATION
  Report Type: Spontaneous
  Country: US (occurrence: None)
  Receive Date: 20121011
  Receipt Date: 20121011
  Transmission Date: 20130627
  Serious: Yes (Death, Other)
  Sender: FDA-Public Use
  Company Number: None

PATIENT
  Age: 76 Year
  Sex: Male
  Weight: 83.92 kg

DRUGS (2)
  1. ZYPREXA [Suspect]
     Dosage: 5 mg and 15 mg each dose  daily po
     Route: 048
     Dates: start: 20101130, end: 20110205
  2. ZYPREXA [Suspect]
     Route: 048

REACTIONS (6)
  - Abasia [None]
  - Speech disorder [None]
  - Confusional state [None]
  - Renal failure [None]
  - Dehydration [None]
  - Tremor [None]
